FAERS Safety Report 17315319 (Version 4)
Quarter: 2020Q2

REPORT INFORMATION
  Report Type: Spontaneous
  Country: US (occurrence: US)
  Receive Date: 20200124
  Receipt Date: 20200626
  Transmission Date: 20200713
  Serious: Yes (Hospitalization)
  Sender: FDA-Public Use
  Company Number: US-VERTEX PHARMACEUTICALS-2020-001034

PATIENT
  Age: 9 Year
  Sex: Female

DRUGS (13)
  1. DESMOPRESSIN [Concomitant]
     Active Substance: DESMOPRESSIN
  2. DICYCLOMINE [Concomitant]
     Active Substance: DICYCLOMINE HYDROCHLORIDE
  3. SODIUM CHLORIDE. [Concomitant]
     Active Substance: SODIUM CHLORIDE
  4. ALBUTEROL [SALBUTAMOL] [Concomitant]
     Active Substance: ALBUTEROL
  5. PROAIR HFA [Concomitant]
     Active Substance: ALBUTEROL SULFATE
  6. CYPROHEPTADINE. [Concomitant]
     Active Substance: CYPROHEPTADINE
  7. SYMDEKO [Suspect]
     Active Substance: IVACAFTOR\TEZACAFTOR
     Indication: CYSTIC FIBROSIS
     Dosage: 1 TAB OF TEZ 100 MG, IVA 150 MG AM; 1 TAB OF 150 MG IVA PM
     Route: 048
     Dates: start: 20191011
  8. PULMOZYME [Concomitant]
     Active Substance: DORNASE ALFA
  9. PERTZYE [Concomitant]
     Active Substance: PANCRELIPASE AMYLASE\PANCRELIPASE LIPASE\PANCRELIPASE PROTEASE
  10. VITAMIN D3 [Concomitant]
     Active Substance: CHOLECALCIFEROL
  11. FLUTICASONE. [Concomitant]
     Active Substance: FLUTICASONE
  12. MELATONIN [Concomitant]
     Active Substance: MELATONIN
  13. PANTOPRAZOLE [Concomitant]
     Active Substance: PANTOPRAZOLE

REACTIONS (1)
  - Small intestinal obstruction [Recovered/Resolved]

NARRATIVE: CASE EVENT DATE: 20200107
